FAERS Safety Report 6671962-7 (Version None)
Quarter: 2010Q2

REPORT INFORMATION
  Report Type: 
  Country: None (occurrence: None)
  Receive Date: 20100407
  Receipt Date: 20100329
  Transmission Date: 20101027
  Serious: Yes (Other)
  Sender: FDA-Public Use
  Company Number: NO-AMGEN-UK370324

PATIENT
  Sex: Female
  Weight: 55 kg

DRUGS (3)
  1. NPLATE [Suspect]
     Indication: THROMBOCYTOPENIA
     Route: 065
     Dates: start: 20090101
  2. IMMU-G [Concomitant]
     Route: 042
  3. RITUXIMAB [Concomitant]

REACTIONS (3)
  - MUSCULAR WEAKNESS [None]
  - PARAESTHESIA [None]
  - THERAPEUTIC RESPONSE DECREASED [None]
